FAERS Safety Report 9300249 (Version 1)
Quarter: 2012Q4

REPORT INFORMATION
  Report Type: Spontaneous
  Country: JP (occurrence: None)
  Receive Date: 20121105
  Receipt Date: 20121105
  Transmission Date: 20130627
  Serious: Yes (Hospitalization, Disabling)
  Sender: FDA-Public Use
  Company Number: MSI 2000 0001

PATIENT
  Age: 52 Year
  Sex: Male

DRUGS (3)
  1. LIPIODOL ULTRA FLUIDE (ETHIODIZED OIL) [Suspect]
     Indication: ARTERIAL INFUSION CHEMOTHERAPY
     Route: 013
     Dates: start: 19950313, end: 19950313
  2. ADRIACIN [Suspect]
     Indication: ARTERIAL INFUSION CHEMOTHERAPY
     Route: 013
     Dates: start: 19950313, end: 19950313
  3. MITOMYCIN [Suspect]
     Indication: ARTERIAL INFUSION CHEMOTHERAPY
     Route: 013
     Dates: start: 19950313, end: 19950313

REACTIONS (8)
  - Hypoaesthesia [None]
  - Spinal cord ischaemia [None]
  - Sepsis [None]
  - Decubitus ulcer [None]
  - Paraplegia [None]
  - Infection [None]
  - Toxicity to various agents [None]
  - Wrong technique in drug usage process [None]
